FAERS Safety Report 15164097 (Version 1)
Quarter: 2018Q3

REPORT INFORMATION
  Report Type: Report from Study
  Country: AU (occurrence: AU)
  Receive Date: 20180719
  Receipt Date: 20180719
  Transmission Date: 20181010
  Serious: Yes (Hospitalization, Disabling, Other)
  Sender: FDA-Public Use
  Company Number: AU-ROCHE-2036670

PATIENT
  Age: 45 Year
  Sex: Female

DRUGS (1)
  1. OCREVUS [Suspect]
     Active Substance: OCRELIZUMAB
     Indication: RELAPSING-REMITTING MULTIPLE SCLEROSIS
     Dosage: 1A/1B AND 2 RECEIVED
     Route: 041
     Dates: start: 20171124, end: 20180612

REACTIONS (14)
  - Nausea [Recovered/Resolved]
  - Cough [Recovered/Resolved]
  - Multiple sclerosis relapse [Recovering/Resolving]
  - Seizure [Recovered/Resolved]
  - Mobility decreased [Recovered/Resolved]
  - Accident [Unknown]
  - Hand fracture [Recovering/Resolving]
  - Foot fracture [Recovering/Resolving]
  - Urinary retention [Not Recovered/Not Resolved]
  - Arthralgia [Recovered/Resolved]
  - Weight decreased [Recovered/Resolved]
  - Clavicle fracture [Recovering/Resolving]
  - Hyperhidrosis [Recovered/Resolved]
  - Diarrhoea [Recovered/Resolved]

NARRATIVE: CASE EVENT DATE: 20171124
